FAERS Safety Report 8854085 (Version 1)
Quarter: 2012Q4

REPORT INFORMATION
  Report Type: Spontaneous
  Country: US (occurrence: None)
  Receive Date: 20121018
  Receipt Date: 20121018
  Transmission Date: 20130627
  Serious: Yes (Hospitalization)
  Sender: FDA-Public Use
  Company Number: 1450901

PATIENT
  Age: 45 Year
  Sex: Female

DRUGS (4)
  1. GEMCITABINE HYDROCHLORIDE [Suspect]
     Indication: CHOLANGIOCARCINOMA NON-RESECTABLE
     Route: 041
  2. OXALIPLATIN [Suspect]
     Indication: CHOLANGIOCARCINOMA NON-RESECTABLE
     Route: 041
  3. BEVACIZUMAB [Suspect]
     Indication: CHOLANGIOCARCINOMA NON-RESECTABLE
     Route: 041
  4. LISINOPRIL [Concomitant]

REACTIONS (5)
  - Posterior reversible encephalopathy syndrome [None]
  - Sinus tachycardia [None]
  - Hypertension [None]
  - Proteinuria [None]
  - Anterograde amnesia [None]
